FAERS Safety Report 5193956-3 (Version None)
Quarter: 2006Q4

REPORT INFORMATION
  Report Type: 
  Country: None (occurrence: None)
  Receive Date: 20061228
  Receipt Date: 20060515
  Transmission Date: 20070319
  Serious: Yes (Disabling, Other)
  Sender: FDA-Public Use
  Company Number: US-MERCK-0605USA02714

PATIENT
  Age: 60 Year
  Sex: Male
  Weight: 61 kg

DRUGS (11)
  1. FOSAMAX [Suspect]
     Indication: OSTEOPOROSIS
     Route: 048
     Dates: start: 20030101, end: 20060417
  2. VYTORIN [Concomitant]
     Route: 048
  3. ACCUPRIL [Concomitant]
     Route: 065
  4. TRAZODONE HYDROCHLORIDE [Concomitant]
     Route: 065
  5. DAYPRO [Concomitant]
     Route: 065
  6. VITAMINS (UNSPECIFIED) [Concomitant]
     Route: 065
  7. DESMOPRESSIN (DESMOPRESSIN ACETATE) [Concomitant]
     Route: 065
  8. DETROL LA [Concomitant]
     Route: 065
  9. QUININE SULFATE [Concomitant]
     Route: 065
  10. FLUVOXAMINE MALEATE [Concomitant]
     Route: 065
  11. PROTONIX [Concomitant]
     Route: 065

REACTIONS (3)
  - MUSCULOSKELETAL PAIN [None]
  - OSTEONECROSIS [None]
  - PARATHYROID TUMOUR BENIGN [None]
